FAERS Safety Report 8371132-0 (Version None)
Quarter: 2012Q2

REPORT INFORMATION
  Report Type: 
  Country: None (occurrence: None)
  Receive Date: 20120518
  Receipt Date: 20120419
  Transmission Date: 20120825
  Serious: No
  Sender: FDA-Public Use
  Company Number: US-ASTRAZENECA-2012SE25846

PATIENT
  Age: 82 Year
  Sex: Male
  Weight: 79.4 kg

DRUGS (8)
  1. CRESTOR [Suspect]
     Route: 048
     Dates: start: 20120101
  2. NORVASC [Concomitant]
     Indication: BLOOD PRESSURE ABNORMAL
  3. CRESTOR [Suspect]
     Route: 048
     Dates: start: 20111001, end: 20120101
  4. CRESTOR [Suspect]
     Dosage: TAKE IT EVERY OTHER DAY
     Route: 048
  5. CLARITIN [Concomitant]
     Indication: ALLERGIC SINUSITIS
  6. CLONIDINE [Concomitant]
     Indication: BLOOD PRESSURE ABNORMAL
  7. ALLOPURINOL [Concomitant]
     Indication: GOUT
  8. ZIAC [Concomitant]
     Indication: BLOOD PRESSURE ABNORMAL

REACTIONS (2)
  - DIARRHOEA [None]
  - OFF LABEL USE [None]
